FAERS Safety Report 7414202-3 (Version None)
Quarter: 2011Q2

REPORT INFORMATION
  Report Type: 
  Country: None (occurrence: None)
  Receive Date: 20110414
  Receipt Date: 20110408
  Transmission Date: 20111010
  Serious: Yes (Death, Other)
  Sender: FDA-Public Use
  Company Number: GB-PFIZER INC-2011078927

PATIENT
  Sex: Male

DRUGS (1)
  1. TIGECYCLINE [Suspect]

REACTIONS (3)
  - DRUG INEFFECTIVE [None]
  - SEPTIC SHOCK [None]
  - SEPSIS [None]
